FAERS Safety Report 6971105-6 (Version None)
Quarter: 2010Q3

REPORT INFORMATION
  Report Type: 
  Country: None (occurrence: None)
  Receive Date: 20100903
  Receipt Date: 20100823
  Transmission Date: 20110219
  Serious: Yes (Hospitalization)
  Sender: FDA-Public Use
  Company Number: JP-SOLVAY-00310004689

PATIENT
  Age: 60 Year
  Sex: Female

DRUGS (2)
  1. LUVOX [Suspect]
     Indication: DEPRESSION
     Dosage: 200 MILLIGRAM (S) ORAL
     Route: 048
     Dates: start: 19990621, end: 20100517
  2. LUVOX [Suspect]
     Indication: DEPRESSION
     Dosage: 200 MILLIGRAM (S) ORAL
     Route: 048

REACTIONS (5)
  - ALANINE AMINOTRANSFERASE INCREASED [None]
  - ASPARTATE AMINOTRANSFERASE INCREASED [None]
  - BLOOD CREATINE PHOSPHOKINASE INCREASED [None]
  - BLOOD LACTATE DEHYDROGENASE INCREASED [None]
  - SEROTONIN SYNDROME [None]
